FAERS Safety Report 4571576-9 (Version None)
Quarter: 2005Q1

REPORT INFORMATION
  Report Type: 
  Country: None (occurrence: None)
  Receive Date: 20050203
  Receipt Date: 20050203
  Transmission Date: 20050727
  Serious: Yes (Other)
  Sender: FDA-Public Use
  Company Number: None

PATIENT
  Sex: Female

DRUGS (2)
  1. OXYCONTIN [Suspect]
     Indication: OSTEOARTHRITIS
     Dosage: 80 MG 2 BID
     Dates: start: 20011101
  2. PERCOCET [Suspect]
     Indication: PAIN
     Dosage: 1-2 PO Q 4-6 H PRN
     Route: 048
     Dates: start: 20010101

REACTIONS (3)
  - HYPERSENSITIVITY [None]
  - INADEQUATE ANALGESIA [None]
  - PHARMACEUTICAL PRODUCT COMPLAINT [None]
